FAERS Safety Report 4520179-0 (Version None)
Quarter: 2004Q4

REPORT INFORMATION
  Report Type: 
  Country: None (occurrence: None)
  Receive Date: 20041027
  Receipt Date: 20040820
  Transmission Date: 20050328
  Serious: No
  Sender: FDA-Public Use
  Company Number: US089048

PATIENT
  Sex: Female

DRUGS (3)
  1. SENSIPAR [Suspect]
     Indication: HYPERPARATHYROIDISM SECONDARY
     Dosage: PO
     Route: 048
  2. ISOSORBIDE DINITRATE [Concomitant]
  3. ATENOLOL [Concomitant]

REACTIONS (3)
  - ANGINA PECTORIS [None]
  - NAUSEA [None]
  - VOMITING [None]
